FAERS Safety Report 8513162 (Version 4)
Quarter: 2013Q1

REPORT INFORMATION
  Report Type: Spontaneous
  Country: JP (occurrence: JP)
  Receive Date: 20120416
  Receipt Date: 20130218
  Transmission Date: 20140127
  Serious: Yes (Hospitalization)
  Sender: FDA-Public Use
  Company Number: JP-BIOGENIDEC-2011BI002182

PATIENT
  Age: 30 Year
  Sex: Female
  Weight: 51 kg

DRUGS (16)
  1. AVONEX [Suspect]
     Indication: RELAPSING-REMITTING MULTIPLE SCLEROSIS
     Route: 030
     Dates: start: 20100510
  2. LOXONIN [Concomitant]
     Indication: PROPHYLAXIS
     Route: 048
     Dates: start: 20100603
  3. SELBEX [Concomitant]
     Indication: PROPHYLAXIS
     Route: 048
     Dates: start: 20100830
  4. BROTIZOLAM [Concomitant]
     Indication: INSOMNIA
     Route: 048
     Dates: start: 20100830, end: 20101231
  5. PREDONINE [Concomitant]
     Indication: RASH
     Dates: start: 20101108, end: 20101207
  6. ANTEBATE [Concomitant]
     Indication: RASH
     Dates: start: 20101108, end: 20101207
  7. HIRUDOID [Concomitant]
     Indication: RASH
     Dates: start: 20101108, end: 20101207
  8. LENDORMIN [Concomitant]
     Indication: INSOMNIA
     Route: 048
     Dates: start: 20110113
  9. ZITHROMAC [Concomitant]
     Indication: GINGIVAL PAIN
     Route: 048
     Dates: start: 20110502, end: 20110504
  10. ALLELOCK (OLOPATADINE HYDROCHLORIDE) [Concomitant]
     Indication: PRURITUS
     Route: 048
     Dates: start: 20101108, end: 20101112
  11. ALLELOCK (OLOPATADINE HYDROCHLORIDE) [Concomitant]
     Indication: RASH
     Route: 048
     Dates: start: 20101108, end: 20101112
  12. ALLELOCK (OLOPATADINE HYDROCHLORIDE) [Concomitant]
     Indication: PRURITUS
     Route: 048
     Dates: start: 20110505, end: 20110507
  13. ALLELOCK (OLOPATADINE HYDROCHLORIDE) [Concomitant]
     Indication: RASH
     Route: 048
     Dates: start: 20110505, end: 20110507
  14. ALLELOCK (OLOPATADINE HYDROCHLORIDE) [Concomitant]
     Indication: PRURITUS
     Route: 048
     Dates: start: 20110512
  15. ALLELOCK (OLOPATADINE HYDROCHLORIDE) [Concomitant]
     Indication: RASH
     Route: 048
     Dates: start: 20110512
  16. PL [Concomitant]
     Indication: NASOPHARYNGITIS
     Route: 048
     Dates: start: 20110512, end: 20110611

REACTIONS (15)
  - Hypoaesthesia [Unknown]
  - Muscle spasms [Unknown]
  - Rash [Recovered/Resolved]
  - Blepharospasm [Recovered/Resolved]
  - Diplopia [Recovered/Resolved]
  - Sensory disturbance [Recovered/Resolved]
  - Multiple sclerosis relapse [Recovered/Resolved]
  - Nasopharyngitis [Recovered/Resolved]
  - Gingival pain [Recovered/Resolved]
  - Bronchitis [Recovered/Resolved]
  - Eczema [Recovered/Resolved]
  - Fractured coccyx [Recovered/Resolved]
  - Peripheral circulatory failure [Recovered/Resolved]
  - Psychosomatic disease [Recovered/Resolved]
  - Pain in extremity [Recovered/Resolved]
